FAERS Safety Report 11744496 (Version 1)
Quarter: 2015Q4

REPORT INFORMATION
  Report Type: Spontaneous
  Country: US (occurrence: US)
  Receive Date: 20151116
  Receipt Date: 20151116
  Transmission Date: 20160304
  Serious: No
  Sender: FDA-Public Use
  Company Number: US-LPDUSPRD-20150695

PATIENT
  Age: 30 Year

DRUGS (1)
  1. INJECTAFER [Suspect]
     Active Substance: FERRIC CARBOXYMALTOSE
     Dosage: DOSE UNKNOWN
     Route: 042

REACTIONS (1)
  - Nausea [Recovered/Resolved]
